FAERS Safety Report 10101057 (Version 2)
Quarter: 2014Q2

REPORT INFORMATION
  Report Type: Spontaneous
  Country: US (occurrence: US)
  Receive Date: 20140424
  Receipt Date: 20140425
  Transmission Date: 20141212
  Serious: No
  Sender: FDA-Public Use
  Company Number: US-BIOGENIDEC-2014BI037943

PATIENT
  Sex: Male

DRUGS (20)
  1. TYSABRI [Suspect]
     Indication: PRODUCT USED FOR UNKNOWN INDICATION
     Route: 042
  2. TECFIDERA [Concomitant]
     Indication: PRODUCT USED FOR UNKNOWN INDICATION
     Dates: start: 20131006
  3. AMPYRA [Concomitant]
     Indication: PRODUCT USED FOR UNKNOWN INDICATION
     Dates: start: 201107
  4. VITAMIN D3 [Concomitant]
  5. LOSARTAN HCT [Concomitant]
  6. FENOFIBRATE [Concomitant]
  7. TAMSULOSIN [Concomitant]
  8. ZOLPIDEM TARTRATE [Concomitant]
  9. VENLAFAXINE [Concomitant]
     Indication: DEPRESSED MOOD
  10. GILENYA [Concomitant]
     Indication: MULTIPLE SCLEROSIS
  11. REBIF [Concomitant]
     Indication: MULTIPLE SCLEROSIS
     Route: 058
  12. REBIF [Concomitant]
     Indication: MULTIPLE SCLEROSIS
     Route: 058
  13. AMITRIPTYLINE HCL [Concomitant]
  14. GABAPENTIN [Concomitant]
  15. BACLOFEN [Concomitant]
  16. HYDROCODONE BITARTRATE AND ACETAMINOPHEN [Concomitant]
     Indication: PAIN
  17. METFORMIN HYDROCHLORIDE [Concomitant]
     Indication: TYPE 2 DIABETES MELLITUS
  18. DOCUSATE SODIUM [Concomitant]
     Route: 048
  19. TRILEPTAL [Concomitant]
  20. COPAXONE [Concomitant]
     Indication: MULTIPLE SCLEROSIS

REACTIONS (1)
  - Adverse event [Unknown]
